FAERS Safety Report 4351421-7 (Version None)
Quarter: 2004Q2

REPORT INFORMATION
  Report Type: 
  Country: None (occurrence: None)
  Receive Date: 20040428
  Receipt Date: 20040415
  Transmission Date: 20050107
  Serious: Yes (Other)
  Sender: FDA-Public Use
  Company Number: USA040464914

PATIENT
  Age: 44 Year
  Sex: Male

DRUGS (1)
  1. CIALIS [Suspect]

REACTIONS (4)
  - DYSPAREUNIA [None]
  - ERECTION INCREASED [None]
  - FRACTURE OF PENIS [None]
  - SWELLING [None]
